FAERS Safety Report 8857436 (Version 2)
Quarter: 2012Q4

REPORT INFORMATION
  Report Type: Report from Study
  Country: CA (occurrence: CA)
  Receive Date: 20121024
  Receipt Date: 20121116
  Transmission Date: 20130627
  Serious: Yes (Death, Hospitalization)
  Sender: FDA-Public Use
  Company Number: CA-JNJFOC-20121011270

PATIENT
  Age: 70 Year
  Sex: Male

DRUGS (1)
  1. STELARA [Suspect]
     Indication: PSORIASIS
     Route: 058
     Dates: start: 20110212

REACTIONS (2)
  - Death [Fatal]
  - Peripheral vascular disorder [Unknown]
